FAERS Safety Report 12314001 (Version 2)
Quarter: 2016Q2

REPORT INFORMATION
  Report Type: Report from Study
  Country: NL (occurrence: NL)
  Receive Date: 20160428
  Receipt Date: 20160511
  Transmission Date: 20160815
  Serious: Yes (Death, Other)
  Sender: FDA-Public Use
  Company Number: NL-CELGENEUS-NLD-2015022949

PATIENT

DRUGS (4)
  1. DEXAMETHASONE. [Concomitant]
     Active Substance: DEXAMETHASONE
     Indication: PLASMA CELL MYELOMA
     Route: 065
  2. REVLIMID [Suspect]
     Active Substance: LENALIDOMIDE
     Indication: PLASMA CELL MYELOMA
     Dosage: 10 MILLIGRAM
     Route: 048
  3. BORTEZOMIB [Concomitant]
     Active Substance: BORTEZOMIB
     Indication: PLASMA CELL MYELOMA
     Route: 041
  4. BORTEZOMIB [Concomitant]
     Active Substance: BORTEZOMIB
     Route: 041

REACTIONS (8)
  - Neuropathy peripheral [Unknown]
  - Toxicity to various agents [Unknown]
  - Neuralgia [Unknown]
  - Death [Fatal]
  - Haematotoxicity [Unknown]
  - Plasma cell myeloma [Fatal]
  - Infection [Unknown]
  - Plasma cell myeloma recurrent [Unknown]
